FAERS Safety Report 4665482-9 (Version None)
Quarter: 2005Q2

REPORT INFORMATION
  Report Type: 
  Country: None (occurrence: None)
  Receive Date: 20050519
  Receipt Date: 20040830
  Transmission Date: 20051028
  Serious: No
  Sender: FDA-Public Use
  Company Number: US-BRISTOL-MYERS SQUIBB COMPANY-12687471

PATIENT
  Age: 66 Year
  Sex: Male

DRUGS (5)
  1. CYTOXAN [Suspect]
     Indication: CHRONIC LYMPHOCYTIC LEUKAEMIA
     Route: 042
     Dates: start: 20040830, end: 20040830
  2. KYTRIL [Concomitant]
     Indication: PREMEDICATION
  3. ONCOVIN [Concomitant]
     Route: 040
  4. PREDNISONE [Concomitant]
  5. EPOGEN [Concomitant]

REACTIONS (1)
  - EXTRAVASATION [None]
